FAERS Safety Report 7098818-2 (Version None)
Quarter: 2010Q4

REPORT INFORMATION
  Report Type: 
  Country: None (occurrence: None)
  Receive Date: 20101112
  Receipt Date: 20101105
  Transmission Date: 20110411
  Serious: Yes (Death)
  Sender: FDA-Public Use
  Company Number: DE-CELGENEUS-062-21880-09061213

PATIENT
  Age: 77 Year
  Sex: Male
  Weight: 73 kg

DRUGS (3)
  1. REVLIMID [Suspect]
     Indication: MULTIPLE MYELOMA
     Route: 048
     Dates: start: 20081127, end: 20100511
  2. DEXAMETHASONE [Concomitant]
     Indication: MULTIPLE MYELOMA
     Route: 065
     Dates: start: 20081127, end: 20090601
  3. MARCUMAS [Concomitant]
     Route: 065
     Dates: start: 20090218

REACTIONS (1)
  - GENERAL PHYSICAL HEALTH DETERIORATION [None]
